FAERS Safety Report 5183828-2 (Version None)
Quarter: 2006Q4

REPORT INFORMATION
  Report Type: 
  Country: None (occurrence: None)
  Receive Date: 20061220
  Receipt Date: 20060210
  Transmission Date: 20070319
  Serious: Yes (Death)
  Sender: FDA-Public Use
  Company Number: NL-GLAXOSMITHKLINE-B0412284A

PATIENT
  Age: 6 Year
  Sex: Female

DRUGS (2)
  1. VENTOLIN [Suspect]
     Indication: ASTHMA
     Dosage: 100MCG SEE DOSAGE TEXT
     Route: 055
  2. FLUTICASONE PROPIONATE [Suspect]
     Indication: ASTHMA
     Route: 055

REACTIONS (10)
  - BRONCHOSPASM [None]
  - CARDIAC ARREST [None]
  - DRUG INEFFECTIVE [None]
  - DYSPNOEA [None]
  - HYPERCAPNIA [None]
  - METABOLIC ACIDOSIS [None]
  - MYDRIASIS [None]
  - PUPILLARY DISORDER [None]
  - RESPIRATORY ACIDOSIS [None]
  - TOTAL LUNG CAPACITY INCREASED [None]
